FAERS Safety Report 8141006-9 (Version None)
Quarter: 2012Q1

REPORT INFORMATION
  Report Type: 
  Country: None (occurrence: None)
  Receive Date: 20120216
  Receipt Date: 20120203
  Transmission Date: 20120608
  Serious: Yes (Death, Other)
  Sender: FDA-Public Use
  Company Number: AU-ASTELLAS-2012US001704

PATIENT
  Age: 60 Year
  Sex: Female

DRUGS (2)
  1. ANIDULAFUNGIN [Concomitant]
     Indication: PRODUCT USED FOR UNKNOWN INDICATION
     Dosage: UNK
     Route: 065
  2. AMBISOME [Suspect]
     Indication: CANDIDIASIS
     Dosage: 3 MG/KG, UNKNOWN/D
     Route: 065

REACTIONS (3)
  - DEATH [None]
  - PANCREATITIS [None]
  - HYPERBILIRUBINAEMIA [None]
